FAERS Safety Report 7055188-3 (Version None)
Quarter: 2010Q4

REPORT INFORMATION
  Report Type: 
  Country: None (occurrence: None)
  Receive Date: 20101020
  Receipt Date: 20101020
  Transmission Date: 20110411
  Serious: Yes (Life-Threatening, Hospitalization)
  Sender: FDA-Public Use
  Company Number: None

PATIENT
  Age: 46 Year
  Sex: Male
  Weight: 136.0791 kg

DRUGS (1)
  1. ZESTRIL [Suspect]
     Indication: HYPERTENSION
     Dosage: UNSURE 1 X DAILY ORAL
     Route: 048
     Dates: start: 20000101, end: 20070101

REACTIONS (3)
  - PHARYNGEAL OEDEMA [None]
  - RETCHING [None]
  - SWELLING FACE [None]
